FAERS Safety Report 7321406-7 (Version None)
Quarter: 2011Q1

REPORT INFORMATION
  Report Type: 
  Country: None (occurrence: None)
  Receive Date: 20110228
  Receipt Date: 20100512
  Transmission Date: 20110831
  Serious: Yes (Other)
  Sender: FDA-Public Use
  Company Number: US-PFIZER INC-2010060630

PATIENT
  Sex: Female
  Weight: 82.993 kg

DRUGS (4)
  1. GEODON [Suspect]
     Indication: BIPOLAR DISORDER
     Dosage: 20 MG, 2X/DAY
     Route: 048
     Dates: start: 20100322
  2. GEODON [Suspect]
     Dosage: 40 MG, 2X/DAY
     Route: 048
  3. GEODON [Suspect]
     Dosage: 80 MG, 2X/DAY
     Route: 048
  4. GEODON [Suspect]
     Dosage: 60 MG, 2X/DAY
     Route: 048

REACTIONS (1)
  - HYPERPROLACTINAEMIA [None]
